FAERS Safety Report 7277120-X (Version None)
Quarter: 2011Q1

REPORT INFORMATION
  Report Type: 
  Country: None (occurrence: None)
  Receive Date: 20110202
  Receipt Date: 20110202
  Transmission Date: 20110831
  Serious: Yes (Other)
  Sender: FDA-Public Use
  Company Number: None

PATIENT
  Age: 69 Year
  Sex: Female
  Weight: 95.2554 kg

DRUGS (9)
  1. AMIODARONE HCL [Suspect]
     Indication: ARRHYTHMIA
     Dosage: 200MG 2X A DAY
     Dates: start: 20101207, end: 20110107
  2. BEMETANIDE [Concomitant]
  3. METFORMIN HCL [Concomitant]
  4. LISINOPRIL [Concomitant]
  5. SIMVASTATIN [Concomitant]
  6. GLIPIZIDE [Concomitant]
  7. METOPROLOL [Concomitant]
  8. ACTOS [Concomitant]
  9. AMLODIPINE [Concomitant]

REACTIONS (1)
  - VISION BLURRED [None]
